FAERS Safety Report 9307821 (Version 3)
Quarter: 2013Q2

REPORT INFORMATION
  Report Type: Report from Study
  Country: ES (occurrence: ES)
  Receive Date: 20130524
  Receipt Date: 20130621
  Transmission Date: 20140414
  Serious: Yes (Death, Hospitalization)
  Sender: FDA-Public Use
  Company Number: ES-GENZYME-MOZO-1000865

PATIENT
  Age: 58 Year
  Sex: Female
  Weight: 82 kg

DRUGS (31)
  1. MOZOBIL [Suspect]
     Indication: ACUTE MYELOID LEUKAEMIA
     Dosage: 13.1 MG, BID, INDUCTION PHASE
     Route: 042
     Dates: start: 20130423, end: 20130426
  2. FLUDARA [Suspect]
     Indication: ACUTE MYELOID LEUKAEMIA
     Dosage: 54.6 MG, QD, INDUCTION PHASE
     Route: 042
     Dates: start: 20130423, end: 20130426
  3. IDARUBICIN [Suspect]
     Indication: ACUTE MYELOID LEUKAEMIA
     Dosage: 18.2 MG, QD, INDUCTION PHASE
     Route: 042
     Dates: start: 20130423, end: 20130425
  4. CYTARABINE [Suspect]
     Indication: ACUTE MYELOID LEUKAEMIA
     Dosage: 3640 MG, QD, INDUCTION PHASE
     Route: 042
     Dates: start: 20130423, end: 20130426
  5. G-CSF [Suspect]
     Indication: ACUTE MYELOID LEUKAEMIA
     Dosage: 0.3 MG, INDUCTION PHASE
     Route: 058
     Dates: start: 20130423, end: 20130426
  6. RANITIDINE [Concomitant]
     Indication: PRODUCT USED FOR UNKNOWN INDICATION
     Dosage: 300 MG, QD
     Route: 065
  7. ATENOLOL [Concomitant]
     Indication: PRODUCT USED FOR UNKNOWN INDICATION
     Dosage: 50 MG, QD
     Route: 065
  8. DIAZEPAM [Concomitant]
     Indication: PRODUCT USED FOR UNKNOWN INDICATION
     Dosage: 5 MG, QD (AT DAY)
     Route: 065
  9. LORAZEPAM [Concomitant]
     Indication: PRODUCT USED FOR UNKNOWN INDICATION
     Dosage: 1 MG, QD (DAY)
     Route: 065
  10. MIRAPEXIN [Concomitant]
     Indication: PRODUCT USED FOR UNKNOWN INDICATION
     Dosage: 0.7 MG, QD (AT NIGHT)
     Route: 065
  11. SIMVASTATIN [Concomitant]
     Indication: PRODUCT USED FOR UNKNOWN INDICATION
     Dosage: 20 MG, QD
     Route: 065
  12. ALLOPURINOL [Concomitant]
     Indication: PRODUCT USED FOR UNKNOWN INDICATION
     Dosage: 300 MG, QD
     Route: 065
  13. TRAMADOL [Concomitant]
     Indication: STOMATITIS
     Dosage: 50 MG, QID
     Route: 065
  14. TRAMADOL [Concomitant]
     Indication: GASTROINTESTINAL INFLAMMATION
  15. ACYCLOVIR [Concomitant]
     Indication: PRODUCT USED FOR UNKNOWN INDICATION
     Dosage: 800 MG, BID
     Route: 065
  16. METOCLOPRAMIDE [Concomitant]
     Indication: NAUSEA
     Dosage: UNK
     Route: 065
  17. METOCLOPRAMIDE [Concomitant]
     Indication: VOMITING
  18. ONDANSETRON [Concomitant]
     Indication: NAUSEA
     Dosage: UNK
     Route: 065
  19. ONDANSETRON [Concomitant]
     Indication: VOMITING
  20. CHLORPROMAZINE [Concomitant]
     Indication: NAUSEA
     Dosage: UNK
     Route: 065
  21. CHLORPROMAZINE [Concomitant]
     Indication: VOMITING
  22. HALOPERIDOL [Concomitant]
     Indication: NAUSEA
     Dosage: UNK
     Route: 065
  23. HALOPERIDOL [Concomitant]
     Indication: VOMITING
  24. DEXAMETHASONE [Concomitant]
     Indication: NAUSEA
     Dosage: UNK
     Route: 065
  25. DEXAMETHASONE [Concomitant]
     Indication: VOMITING
  26. NSAID^S [Concomitant]
     Indication: STOMATITIS
     Dosage: UNK
     Route: 065
  27. NSAID^S [Concomitant]
     Indication: GASTROINTESTINAL INFLAMMATION
  28. METAMIZOLE [Concomitant]
     Indication: STOMATITIS
     Dosage: UNK
     Route: 065
  29. METAMIZOLE [Concomitant]
     Indication: GASTROINTESTINAL INFLAMMATION
  30. MORPHINE [Concomitant]
     Indication: PAIN
     Dosage: UNK
     Route: 065
  31. MONAGHAN [Concomitant]
     Indication: DYSPNOEA
     Dosage: UNK
     Route: 065

REACTIONS (5)
  - Urinary tract infection bacterial [Recovered/Resolved]
  - Staphylococcal infection [Recovered/Resolved]
  - Acute respiratory failure [Fatal]
  - Febrile neutropenia [Fatal]
  - Lung infiltration [Fatal]
